FAERS Safety Report 19376391 (Version 1)
Quarter: 2021Q2

REPORT INFORMATION
  Report Type: Spontaneous
  Country: SE (occurrence: SE)
  Receive Date: 20210605
  Receipt Date: 20210605
  Transmission Date: 20210717
  Serious: Yes (Congenital Anomaly, Other)
  Sender: FDA-Public Use
  Company Number: SE-AUROBINDO-AUR-APL-2021-023076

PATIENT

DRUGS (4)
  1. LAMOTRIGINE. [Suspect]
     Active Substance: LAMOTRIGINE
     Indication: PRODUCT USED FOR UNKNOWN INDICATION
     Dosage: DURING 1ST, 2ND AND 3RD TRIMESTER OF PREGNANCY
     Route: 064
  2. VALPROIC ACID. [Suspect]
     Active Substance: VALPROIC ACID
     Indication: PRODUCT USED FOR UNKNOWN INDICATION
     Dosage: 1200 MILLIGRAM, ONCE A DAY (DURING 1ST TRIMESTER OF PREGNANCY)
     Route: 064
  3. LEVETIRACETAM. [Suspect]
     Active Substance: LEVETIRACETAM
     Indication: PRODUCT USED FOR UNKNOWN INDICATION
     Dosage: DURING 2ND AND 3RD TRIMESTER OF PREGNANCY
     Route: 064
  4. VALPROIC ACID. [Suspect]
     Active Substance: VALPROIC ACID
     Dosage: DURING 2ND TRIMESTER OF PREGNANCY

REACTIONS (2)
  - Developmental hip dysplasia [Unknown]
  - Foetal exposure during pregnancy [Unknown]

NARRATIVE: CASE EVENT DATE: 2016
